FAERS Safety Report 24701034 (Version 1)
Quarter: 2024Q4

REPORT INFORMATION
  Report Type: Spontaneous
  Country: DE (occurrence: DE)
  Receive Date: 20241205
  Receipt Date: 20241205
  Transmission Date: 20250115
  Serious: Yes (Life-Threatening, Other)
  Sender: SANDOZ
  Company Number: None

PATIENT
  Age: 71 Year
  Sex: Female

DRUGS (1)
  1. CLINDAMYCIN HYDROCHLORIDE [Suspect]
     Active Substance: CLINDAMYCIN HYDROCHLORIDE
     Indication: Diarrhoea
     Dosage: (UNK) 17. INDICATIONS(S) FOR USE
     Route: 065

REACTIONS (1)
  - Hepatic failure [Unknown]
